FAERS Safety Report 23240360 (Version 1)
Quarter: 2023Q4

REPORT INFORMATION
  Report Type: Spontaneous
  Country: US (occurrence: US)
  Receive Date: 20231129
  Receipt Date: 20231129
  Transmission Date: 20240109
  Serious: Yes (Other)
  Sender: FDA-Public Use
  Company Number: US-SA-2023SA363471

PATIENT
  Age: 61 Year
  Sex: Female

DRUGS (3)
  1. THYROTROPIN ALFA [Suspect]
     Active Substance: THYROTROPIN ALFA
     Indication: Papillary thyroid cancer
     Dosage: TWO DOSES
  2. THYROTROPIN ALFA [Suspect]
     Active Substance: THYROTROPIN ALFA
     Dosage: ANOTHER DOSE
  3. PREDNISONE [Concomitant]
     Active Substance: PREDNISONE
     Dosage: 50 MG, QD

REACTIONS (6)
  - Metastases to bone [Unknown]
  - Metastases to lung [Unknown]
  - Chest pain [Unknown]
  - Pulmonary mass [Unknown]
  - Musculoskeletal chest pain [Unknown]
  - Palpitations [Unknown]
